FAERS Safety Report 4763279-2 (Version None)
Quarter: 2005Q3

REPORT INFORMATION
  Report Type: 
  Country: None (occurrence: None)
  Receive Date: 20050902
  Receipt Date: 20050824
  Transmission Date: 20060218
  Serious: Yes (Hospitalization)
  Sender: FDA-Public Use
  Company Number: 2005-03138

PATIENT
  Age: 4 Year
  Sex: Male
  Weight: 17 kg

DRUGS (11)
  1. ACYCLOVIR [Suspect]
     Indication: ENCEPHALITIS
     Dosage: SEE IMAGE
     Route: 048
  2. ACYCLOVIR [Suspect]
     Indication: HERPES VIRUS INFECTION
     Dosage: SEE IMAGE
     Route: 048
  3. PHENYTOIN [Suspect]
     Dosage: SEE IMAGE
     Route: 048
  4. VALPROATE SODIUM [Suspect]
     Dosage: SEE IMAGE
     Route: 048
  5. DIAZEPAM [Concomitant]
  6. PARACETAMOL (PARACETAMOL) [Concomitant]
  7. LYSINE ACETYLSALICYLATE [Concomitant]
  8. ISONIAZID [Concomitant]
  9. RIFAMPICIN [Concomitant]
  10. PYRAZINAMIDE [Concomitant]
  11. DEXAMETHASONE [Concomitant]

REACTIONS (2)
  - ANTICONVULSANT DRUG LEVEL DECREASED [None]
  - DRUG INTERACTION [None]
